FAERS Safety Report 21877085 (Version 2)
Quarter: 2023Q1

REPORT INFORMATION
  Report Type: Spontaneous
  Country: FR (occurrence: FR)
  Receive Date: 20230118
  Receipt Date: 20230221
  Transmission Date: 20230418
  Serious: Yes (Death, Hospitalization)
  Sender: FDA-Public Use
  Company Number: FR-CELLTRION INC.-2023FR000485

PATIENT

DRUGS (6)
  1. RITUXIMAB [Suspect]
     Active Substance: RITUXIMAB
     Indication: Acquired epidermolysis bullosa
     Dosage: 1 G (2 INFUSIONS 15 DAYS APART)
     Route: 042
  2. RITUXIMAB [Suspect]
     Active Substance: RITUXIMAB
     Indication: Acquired epidermolysis bullosa
     Dosage: 1 G (2 INFUSIONS 15 DAYS APART)
     Route: 042
  3. PREDNISONE [Suspect]
     Active Substance: PREDNISONE
     Indication: Acquired epidermolysis bullosa
     Dosage: 1 MG/KG/D
  4. METHYLPREDNISOLONE [Suspect]
     Active Substance: METHYLPREDNISOLONE
     Indication: Acquired epidermolysis bullosa
     Dosage: TWO BOLUSES
  5. CYCLOSPORINE [Suspect]
     Active Substance: CYCLOSPORINE
     Indication: Acquired epidermolysis bullosa
     Dosage: 5 MG/KG/D
  6. SULFASALAZINE [Concomitant]
     Active Substance: SULFASALAZINE
     Dosage: HAD TO STOP AFTER 4 WEEKS BECAUSE OF DRUG REACTION WITH EOSINOPHILIA AND SYSTEMIC SYMPTOMS (DRESS)

REACTIONS (4)
  - Acute respiratory failure [Fatal]
  - Pneumocystis jirovecii pneumonia [Fatal]
  - Therapy partial responder [Unknown]
  - Off label use [Unknown]
